FAERS Safety Report 10015355 (Version 1)
Quarter: 2014Q1

REPORT INFORMATION
  Report Type: Spontaneous
  Country: US (occurrence: US)
  Receive Date: 20140317
  Receipt Date: 20140317
  Transmission Date: 20141002
  Serious: No
  Sender: FDA-Public Use
  Company Number: US-PFIZER INC-2014076521

PATIENT
  Age: 47 Year
  Sex: Female
  Weight: 96.15 kg

DRUGS (1)
  1. CHANTIX [Suspect]
     Indication: SMOKING CESSATION THERAPY
     Dosage: UNK

REACTIONS (3)
  - Mood swings [Unknown]
  - Weight increased [Unknown]
  - Cardiac disorder [Unknown]
